FAERS Safety Report 8762137 (Version 4)
Quarter: 2013Q1

REPORT INFORMATION
  Report Type: Report from Study
  Country: US (occurrence: US)
  Receive Date: 20120830
  Receipt Date: 20130222
  Transmission Date: 20140127
  Serious: Yes (Hospitalization, Other)
  Sender: FDA-Public Use
  Company Number: US-ACTELION-A-US2012-70048

PATIENT
  Age: 47 Year
  Sex: Female

DRUGS (22)
  1. VELETRI [Suspect]
     Indication: PULMONARY ARTERIAL HYPERTENSION
     Dosage: 69 NG/KG, PER MIN
     Route: 042
     Dates: start: 20110926
  2. VELETRI [Suspect]
     Dosage: 65 NG/KG, PER MIN
     Route: 042
     Dates: start: 20120816
  3. VELETRI [Suspect]
     Dosage: 60 NG/KG, PER MIN
     Route: 042
     Dates: start: 20120817
  4. VELETRI [Suspect]
     Dosage: 50 NG/KG, PER MIN
     Route: 042
  5. SILDENAFIL [Concomitant]
  6. LETAIRIS [Concomitant]
  7. LASIX [Concomitant]
  8. ALDACTONE [Concomitant]
  9. DIGOXEN [Concomitant]
  10. OXYGEN [Concomitant]
  11. ASCORBIC ACID [Concomitant]
  12. FERROUS SULFATE [Concomitant]
  13. ARANESP [Concomitant]
  14. METOLAZONE [Concomitant]
  15. MS CONTIN [Concomitant]
  16. CELEXA [Concomitant]
  17. PRILOSEC [Concomitant]
  18. PEPCID [Concomitant]
  19. ANTARA [Concomitant]
  20. CALCIUM + VITAMIN D [Concomitant]
  21. SYNTHROID [Concomitant]
  22. NORCO [Concomitant]

REACTIONS (21)
  - Renal failure [Unknown]
  - Fluid overload [Unknown]
  - Device issue [Unknown]
  - Weight increased [Unknown]
  - Cholelithiasis [Unknown]
  - Renal cyst [Unknown]
  - Hepatosplenomegaly [Unknown]
  - Escherichia urinary tract infection [Unknown]
  - Dizziness [Unknown]
  - Abdominal pain upper [Unknown]
  - Oedema peripheral [Unknown]
  - Abdominal distension [Unknown]
  - Dyspnoea exertional [Unknown]
  - Oxygen consumption increased [Unknown]
  - Chest pain [Unknown]
  - Haemodialysis [Unknown]
  - N-terminal prohormone brain natriuretic peptide increased [Unknown]
  - Ascites [Unknown]
  - Oedema peripheral [Unknown]
  - Back pain [Unknown]
  - Abdominal pain [Unknown]
